FAERS Safety Report 20225596 (Version 5)
Quarter: 2022Q1

REPORT INFORMATION
  Report Type: Report from Study
  Country: US (occurrence: US)
  Receive Date: 20211224
  Receipt Date: 20220307
  Transmission Date: 20220423
  Serious: Yes (Hospitalization, Other)
  Sender: FDA-Public Use
  Company Number: US-NOVARTISTESTPH-NVSC2021US294892

PATIENT
  Sex: Female
  Weight: 148 kg

DRUGS (1)
  1. ENTRESTO [Suspect]
     Active Substance: SACUBITRIL\VALSARTAN
     Indication: Product used for unknown indication
     Dosage: 1 DOSAGE FORM, BID (24/26 MG)
     Route: 048

REACTIONS (8)
  - COVID-19 [Unknown]
  - Pulmonary oedema [Unknown]
  - Dry mouth [Unknown]
  - Dry eye [Unknown]
  - Abnormal loss of weight [Unknown]
  - Muscular weakness [Unknown]
  - Arthritis [Unknown]
  - Cough [Recovering/Resolving]
